FAERS Safety Report 12383882 (Version 1)
Quarter: 2016Q2

REPORT INFORMATION
  Report Type: Spontaneous
  Country: US (occurrence: US)
  Receive Date: 20160519
  Receipt Date: 20160519
  Transmission Date: 20160815
  Serious: No
  Sender: FDA-Public Use
  Company Number: US-HORIZON-PEN-0225-2016

PATIENT

DRUGS (1)
  1. PENNSAID [Suspect]
     Active Substance: DICLOFENAC SODIUM
     Dosage: APPLIED ONCE

REACTIONS (1)
  - Application site pain [Recovered/Resolved]
